FAERS Safety Report 14797046 (Version 1)
Quarter: 2018Q2

REPORT INFORMATION
  Report Type: Spontaneous
  Country: US (occurrence: US)
  Receive Date: 20180423
  Receipt Date: 20180423
  Transmission Date: 20180711
  Serious: No
  Sender: FDA-Public Use
  Company Number: US-SA-2017SA176452

PATIENT
  Age: 53 Year
  Sex: Female

DRUGS (2)
  1. ENOXAPARIN SODIUM - WINTHROP [Suspect]
     Active Substance: ENOXAPARIN SODIUM
     Indication: SURGERY
     Dosage: START DATE: 11 DAYS
     Route: 065
  2. ENOXAPARIN SODIUM - WINTHROP [Suspect]
     Active Substance: ENOXAPARIN SODIUM
     Indication: HYSTERECTOMY
     Dosage: START DATE: 11 DAYS
     Route: 065

REACTIONS (3)
  - Injection site discolouration [Unknown]
  - Injection site haemorrhage [Unknown]
  - Injection site pain [Unknown]
